FAERS Safety Report 4580547-8 (Version None)
Quarter: 2005Q1

REPORT INFORMATION
  Report Type: 
  Country: None (occurrence: None)
  Receive Date: 20050214
  Receipt Date: 20040408
  Transmission Date: 20050727
  Serious: No
  Sender: FDA-Public Use
  Company Number: US-GLAXOSMITHKLINE-A0506356A

PATIENT
  Age: 65 Year
  Sex: Female

DRUGS (3)
  1. LAMICTAL [Suspect]
     Indication: BIPOLAR DISORDER
     Dosage: 50MG PER DAY
     Route: 048
  2. LEXAPRO [Concomitant]
  3. CHONDROITIN [Concomitant]

REACTIONS (2)
  - ARTHRALGIA [None]
  - OEDEMA PERIPHERAL [None]
